FAERS Safety Report 4338408-5 (Version None)
Quarter: 2004Q1

REPORT INFORMATION
  Report Type: 
  Country: None (occurrence: None)
  Receive Date: 20040329
  Receipt Date: 20040219
  Transmission Date: 20041129
  Serious: No
  Sender: FDA-Public Use
  Company Number: USA040259904

PATIENT
  Age: 8 Year
  Sex: Male
  Weight: 44 kg

DRUGS (1)
  1. STRATTERA [Suspect]
     Dosage: 40 MG IN THE EVENING
     Dates: start: 20031219

REACTIONS (5)
  - ABDOMINAL PAIN UPPER [None]
  - ABNORMAL BEHAVIOUR [None]
  - AGGRESSION [None]
  - IRRITABILITY [None]
  - VOMITING [None]
